FAERS Safety Report 10070928 (Version 1)
Quarter: 2014Q2

REPORT INFORMATION
  Report Type: Spontaneous
  Country: GB (occurrence: GB)
  Receive Date: 20140410
  Receipt Date: 20140410
  Transmission Date: 20141212
  Serious: Yes (Other)
  Sender: FDA-Public Use
  Company Number: ALCN2014GB002288

PATIENT
  Age: 65 Year
  Sex: Male
  Weight: 82.55 kg

DRUGS (6)
  1. FLUORESCEIN SODIUM [Suspect]
     Indication: OPHTHALMOLOGICAL EXAMINATION
     Dosage: 1 DF, ONCE/SINGLE
     Route: 047
     Dates: start: 20130710, end: 20130710
  2. ASPIRIN [Concomitant]
  3. CANDESARTAN [Concomitant]
  4. GLICLAZIDE [Concomitant]
  5. GLUCOPHAGE [Concomitant]
  6. SIMVASTATIN [Concomitant]

REACTIONS (2)
  - Palpitations [Recovered/Resolved with Sequelae]
  - Skin disorder [Recovered/Resolved with Sequelae]
